FAERS Safety Report 11512749 (Version 1)
Quarter: 2015Q3

REPORT INFORMATION
  Report Type: Spontaneous
  Country: GB (occurrence: GB)
  Receive Date: 20150916
  Receipt Date: 20150916
  Transmission Date: 20151125
  Serious: Yes (Other)
  Sender: FDA-Public Use
  Company Number: GB-CIPLA LTD.-2015GB07396

PATIENT

DRUGS (4)
  1. TERBINAFINE. [Suspect]
     Active Substance: TERBINAFINE
     Dosage: UNK
     Route: 065
     Dates: start: 20150702
  2. ATENOLOL. [Concomitant]
     Active Substance: ATENOLOL
     Dosage: 1 DF, QD
     Route: 065
     Dates: start: 20140923
  3. AMLODIPINE [Concomitant]
     Active Substance: AMLODIPINE BESYLATE
     Dosage: 1 DF, QD
     Route: 065
     Dates: start: 20141009, end: 20150601
  4. DOXAZOSIN [Concomitant]
     Active Substance: DOXAZOSIN\DOXAZOSIN MESYLATE
     Dosage: 1 DF, QD
     Route: 065
     Dates: start: 20140923

REACTIONS (2)
  - Joint swelling [Recovered/Resolved]
  - Pruritus [Recovered/Resolved]

NARRATIVE: CASE EVENT DATE: 20150715
